FAERS Safety Report 17216603 (Version 2)
Quarter: 2020Q1

REPORT INFORMATION
  Report Type: Spontaneous
  Country: DE (occurrence: DE)
  Receive Date: 20191230
  Receipt Date: 20200107
  Transmission Date: 20200409
  Serious: Yes (Hospitalization)
  Sender: FDA-Public Use
  Company Number: DE-UCBSA-2019055735

PATIENT
  Age: 6 Year
  Sex: Female

DRUGS (17)
  1. EVEROLIMUS. [Suspect]
     Active Substance: EVEROLIMUS
     Indication: TUBEROUS SCLEROSIS COMPLEX
     Dosage: 0.6 MILLIGRAM/KILOGRAM, ONCE DAILY (QD)
  2. EVEROLIMUS. [Suspect]
     Active Substance: EVEROLIMUS
     Indication: PARTIAL SEIZURES
     Dosage: 0.3 MILLIGRAM/KILOGRAM, ONCE DAILY (QD)
  3. CANNABIDIOL [Suspect]
     Active Substance: CANNABIDIOL
     Indication: PARTIAL SEIZURES
     Dosage: INITIAL DOSE UNKNOWN; OILY SOLUTION
     Dates: start: 2018
  4. EVEROLIMUS. [Suspect]
     Active Substance: EVEROLIMUS
     Dosage: 0.15 MILLIGRAM/KILOGRAM, ONCE DAILY (QD)
  5. LEVETIRACETAM. [Suspect]
     Active Substance: LEVETIRACETAM
     Indication: PARTIAL SEIZURES
     Dosage: UNKNOWN DOSE
  6. CLOBAZAM. [Suspect]
     Active Substance: CLOBAZAM
     Indication: PARTIAL SEIZURES
     Dosage: 2.5 MILLIGRAM, 2X/12 HOURS
  7. VALPROATE [Suspect]
     Active Substance: VALPROIC ACID
     Indication: PARTIAL SEIZURES
     Dosage: UNKNOWN DOSE
  8. CANNABIDIOL [Suspect]
     Active Substance: CANNABIDIOL
     Dosage: OILY SOLUTION; 9.3 MG/KG/DAY
  9. TOPIRAMATE. [Suspect]
     Active Substance: TOPIRAMATE
     Indication: PARTIAL SEIZURES
     Dosage: UNKNOWN DOSE
  10. VIMPAT [Suspect]
     Active Substance: LACOSAMIDE
     Indication: PARTIAL SEIZURES
     Dosage: UNKNOWN DOSE
  11. CANNABIDIOL [Suspect]
     Active Substance: CANNABIDIOL
     Dosage: OILY SOLUTION; 20.4 MG/KG/DAY
  12. LAMOTRIGINE. [Suspect]
     Active Substance: LAMOTRIGINE
     Indication: PARTIAL SEIZURES
     Dosage: UNKNOWN DOSE
  13. CARBAMAZEPINE. [Suspect]
     Active Substance: CARBAMAZEPINE
     Indication: PARTIAL SEIZURES
     Dosage: UNKNOWN DOSE
  14. OXCARBAZEPINE. [Suspect]
     Active Substance: OXCARBAZEPINE
     Indication: PARTIAL SEIZURES
     Dosage: UNKNOWN DOSE
  15. SULTHIAME [Suspect]
     Active Substance: SULTHIAME
     Indication: PARTIAL SEIZURES
     Dosage: UNKNOWN DOSE
  16. VIGABATRIN. [Suspect]
     Active Substance: VIGABATRIN
     Indication: PARTIAL SEIZURES
     Dosage: UNKNOWN DOSE
  17. ZONISAMIDE. [Suspect]
     Active Substance: ZONISAMIDE
     Indication: PARTIAL SEIZURES
     Dosage: UNKNOWN DOSE

REACTIONS (2)
  - Tonic convulsion [Unknown]
  - Multiple-drug resistance [Unknown]
